FAERS Safety Report 5047142-8 (Version None)
Quarter: 2006Q3

REPORT INFORMATION
  Report Type: 
  Country: None (occurrence: None)
  Receive Date: 20060703
  Receipt Date: 20060620
  Transmission Date: 20061208
  Serious: Yes (Other)
  Sender: FDA-Public Use
  Company Number: 2006050181

PATIENT
  Age: 54 Year
  Sex: Male

DRUGS (1)
  1. VIAGRA [Suspect]
     Indication: ERECTILE DYSFUNCTION
     Dosage: 25 MG (1 D), ORAL
     Route: 048
     Dates: start: 20050201, end: 20051101

REACTIONS (6)
  - ATRIOVENTRICULAR BLOCK FIRST DEGREE [None]
  - BORRELIA INFECTION [None]
  - BUNDLE BRANCH BLOCK RIGHT [None]
  - COUGH [None]
  - HEART RATE INCREASED [None]
  - STRESS [None]
